FAERS Safety Report 18899886 (Version 3)
Quarter: 2021Q1

REPORT INFORMATION
  Report Type: Spontaneous
  Country: US (occurrence: US)
  Receive Date: 20210216
  Receipt Date: 20210224
  Transmission Date: 20210420
  Serious: Yes (Death, Hospitalization, Other)
  Sender: FDA-Public Use
  Company Number: US-PFIZER INC-2021007519

PATIENT
  Age: 71 Year
  Sex: Male
  Weight: 58.9 kg

DRUGS (2)
  1. BRAFTOVI [Suspect]
     Active Substance: ENCORAFENIB
     Dosage: UNK
  2. MEKTOVI [Interacting]
     Active Substance: BINIMETINIB
     Dosage: UNK

REACTIONS (2)
  - Drug interaction [Unknown]
  - Neoplasm progression [Fatal]

NARRATIVE: CASE EVENT DATE: 20200115
